FAERS Safety Report 16356584 (Version 1)
Quarter: 2019Q2

REPORT INFORMATION
  Report Type: Spontaneous
  Country: KR (occurrence: KR)
  Receive Date: 20190527
  Receipt Date: 20190527
  Transmission Date: 20190711
  Serious: Yes (Other)
  Sender: FDA-Public Use
  Company Number: KR-SA-2019SA141886

PATIENT
  Age: 68 Year
  Sex: Female

DRUGS (2)
  1. GEMCITABINE HYDROCHLORIDE. [Suspect]
     Active Substance: GEMCITABINE HYDROCHLORIDE
     Indication: EWING^S SARCOMA METASTATIC
     Dosage: 0.8 G, MAINTENANCE CHEMOTHERAPY 0.8 G/D
  2. DOCETAXEL. [Suspect]
     Active Substance: DOCETAXEL
     Indication: EWING^S SARCOMA METASTATIC
     Dosage: 62 MG, MAINTENANCE CHEMOTHERAPY 62 MG/D

REACTIONS (1)
  - Toxicity to various agents [Unknown]
